FAERS Safety Report 10188265 (Version 1)
Quarter: 2014Q2

REPORT INFORMATION
  Report Type: Spontaneous
  Country: DE (occurrence: None)
  Receive Date: 20140520
  Receipt Date: 20140520
  Transmission Date: 20141212
  Serious: Yes (Other)
  Sender: FDA-Public Use
  Company Number: 2014MP100575

PATIENT
  Age: 66 Year
  Sex: Male

DRUGS (1)
  1. ADCETRIS (BRENTUXIMAB VEDOTIN) INJECTION [Suspect]
     Indication: PRODUCT USED FOR UNKNOWN INDICATION
     Dates: start: 201402

REACTIONS (2)
  - Shock [None]
  - Systemic inflammatory response syndrome [None]
